FAERS Safety Report 9783310 (Version 1)
Quarter: 2013Q4

REPORT INFORMATION
  Report Type: Spontaneous
  Country: CL (occurrence: CL)
  Receive Date: 20131226
  Receipt Date: 20131226
  Transmission Date: 20140711
  Serious: Yes (Other)
  Sender: FDA-Public Use
  Company Number: CL-PFIZER INC-2013366075

PATIENT
  Age: 51 Year
  Sex: Female

DRUGS (1)
  1. XALATAN [Suspect]
     Indication: GLAUCOMA
     Dosage: 1 DROP PER EYE 1X/DAY
     Route: 047
     Dates: start: 201212, end: 201311

REACTIONS (4)
  - Gallbladder disorder [Unknown]
  - Underweight [Recovered/Resolved]
  - Blepharal pigmentation [Recovering/Resolving]
  - Eye pain [Recovered/Resolved]
